FAERS Safety Report 6209528-5 (Version None)
Quarter: 2009Q2

REPORT INFORMATION
  Report Type: 
  Country: None (occurrence: None)
  Receive Date: 20090527
  Receipt Date: 20090514
  Transmission Date: 20091009
  Serious: Yes (Hospitalization, Other)
  Sender: FDA-Public Use
  Company Number: 230577J08CAN

PATIENT
  Age: 45 Year
  Sex: Female

DRUGS (6)
  1. REBIF [Suspect]
     Indication: MULTIPLE SCLEROSIS
     Dates: start: 20030616, end: 20080624
  2. PAROXETINE HYDROCHLORIDE [Concomitant]
  3. GABAPENTIN [Concomitant]
  4. VASOTEC [Concomitant]
  5. NORVASC [Concomitant]
  6. OMEPRAZOLE [Concomitant]

REACTIONS (7)
  - BLOOD PRESSURE INCREASED [None]
  - FATIGUE [None]
  - GRAND MAL CONVULSION [None]
  - INJECTION SITE HAEMATOMA [None]
  - MALAISE [None]
  - RENAL FAILURE [None]
  - SCLERODERMA [None]
